FAERS Safety Report 5594257-1 (Version None)
Quarter: 2007Q4

REPORT INFORMATION
  Report Type: 
  Country: None (occurrence: None)
  Receive Date: 20071217
  Receipt Date: 20071004
  Transmission Date: 20080405
  Serious: No
  Sender: FDA-Public Use
  Company Number: BDI-010314

PATIENT
  Age: 37 Year
  Sex: Female

DRUGS (2)
  1. MULTIHANCE [Suspect]
     Dosage: 065
     Dates: start: 20071004, end: 20071004
  2. MULTIHANCE [Suspect]
     Dosage: 065
     Dates: start: 20071004, end: 20071004

REACTIONS (2)
  - CHEST DISCOMFORT [None]
  - DYSPNOEA [None]
